FAERS Safety Report 6709598-1 (Version None)
Quarter: 2010Q2

REPORT INFORMATION
  Report Type: 
  Country: None (occurrence: None)
  Receive Date: 20100503
  Receipt Date: 20100503
  Transmission Date: 20101027
  Serious: Yes (Hospitalization)
  Sender: FDA-Public Use
  Company Number: None

PATIENT
  Sex: Female
  Weight: 27.2158 kg

DRUGS (1)
  1. CHILDREN'S ZYRTEC ALLERGY [Suspect]
     Indication: SEASONAL ALLERGY
     Dosage: 5 ML DAILY PO APROX 1.5 MONTHS
     Route: 048

REACTIONS (9)
  - ABNORMAL BEHAVIOUR [None]
  - DIZZINESS [None]
  - FACE INJURY [None]
  - FALL [None]
  - LACERATION [None]
  - LOSS OF CONSCIOUSNESS [None]
  - POOR QUALITY DRUG ADMINISTERED [None]
  - PRODUCT QUALITY ISSUE [None]
  - SOCIAL AVOIDANT BEHAVIOUR [None]
